FAERS Safety Report 23021962 (Version 2)
Quarter: 2024Q2

REPORT INFORMATION
  Report Type: Spontaneous
  Country: NO (occurrence: NO)
  Receive Date: 20231003
  Receipt Date: 20240409
  Transmission Date: 20240716
  Serious: Yes (Other)
  Sender: FDA-Public Use
  Company Number: NO-NOMAADVRE-E2B_00090540

PATIENT
  Age: 14 Year
  Sex: Female

DRUGS (4)
  1. SERTRALINE [Suspect]
     Active Substance: SERTRALINE HYDROCHLORIDE
     Indication: Anxiety
     Dosage: 25 MILLIGRAM, DAILY, 18/NOV/2022 STARTED WITH 25 MG FOR 2 WEEKS, THEN 50
     Route: 065
     Dates: start: 20230515, end: 20230525
  2. SERTRALINE [Suspect]
     Active Substance: SERTRALINE HYDROCHLORIDE
     Dosage: 50 MILLIGRAM, DAILY, 18/NOV/2022 STARTED WITH 25 MG FOR 2 WEEKS, THEN 50
     Dates: start: 20221202, end: 20221221
  3. SERTRALINE [Suspect]
     Active Substance: SERTRALINE HYDROCHLORIDE
     Dosage: 25 MILLIGRAM, DAILY
     Dates: start: 20221118, end: 20221202
  4. SERTRALINE [Suspect]
     Active Substance: SERTRALINE HYDROCHLORIDE
     Dosage: 50 MILLIGRAM, DAILY, 18/NOV/2022 STARTED WITH 25 MG FOR 2 WEEKS, THEN 50
     Route: 065
     Dates: start: 20230428, end: 20230515

REACTIONS (1)
  - Tinnitus [Recovering/Resolving]

NARRATIVE: CASE EVENT DATE: 20221201
